FAERS Safety Report 8002547-8 (Version None)
Quarter: 2011Q4

REPORT INFORMATION
  Report Type: 
  Country: None (occurrence: None)
  Receive Date: 20111222
  Receipt Date: 20111221
  Transmission Date: 20120403
  Serious: Yes (Death, Other)
  Sender: FDA-Public Use
  Company Number: US-US-EMD SERONO, INC.-7102353

PATIENT
  Sex: Female

DRUGS (1)
  1. REBIF [Suspect]
     Indication: PRODUCT USED FOR UNKNOWN INDICATION
     Route: 058
     Dates: start: 20101130

REACTIONS (4)
  - DECREASED APPETITE [None]
  - NAUSEA [None]
  - MYOCARDIAL INFARCTION [None]
  - INJECTION SITE ERYTHEMA [None]
